FAERS Safety Report 13529796 (Version 1)
Quarter: 2017Q2

REPORT INFORMATION
  Report Type: Spontaneous
  Country: CM (occurrence: CM)
  Receive Date: 20170509
  Receipt Date: 20170509
  Transmission Date: 20170830
  Serious: Yes (Other)
  Sender: FDA-Public Use
  Company Number: CM-KALEO, INC-EPIN20170001

PATIENT
  Sex: Female

DRUGS (1)
  1. EPINEPHRINE. [Suspect]
     Active Substance: EPINEPHRINE
     Indication: HAEMOSTASIS
     Dosage: UNKNOWN, UNKNOWN, UNKNOWN

REACTIONS (4)
  - Finger amputation [None]
  - Ischaemia [None]
  - Pain in extremity [None]
  - Gangrene [None]
